FAERS Safety Report 18749721 (Version 1)
Quarter: 2021Q1

REPORT INFORMATION
  Report Type: Spontaneous
  Country: FR (occurrence: FR)
  Receive Date: 20210117
  Receipt Date: 20210117
  Transmission Date: 20210419
  Serious: Yes (Other)
  Sender: FDA-Public Use
  Company Number: FR-TEVA-2021-FR-1868505

PATIENT
  Age: 56 Year
  Sex: Female
  Weight: 60 kg

DRUGS (1)
  1. TAMOXIFENE BASE [Suspect]
     Active Substance: TAMOXIFEN
     Indication: BREAST CANCER
     Dosage: 20MILLIGRAM
     Route: 048
     Dates: start: 20190110, end: 202012

REACTIONS (1)
  - Endometrial sarcoma [Not Recovered/Not Resolved]

NARRATIVE: CASE EVENT DATE: 202011
